FAERS Safety Report 8524063 (Version 7)
Quarter: 2013Q3

REPORT INFORMATION
  Report Type: Spontaneous
  Country: US (occurrence: US)
  Receive Date: 20120420
  Receipt Date: 20130904
  Transmission Date: 20140515
  Serious: Yes (Disabling, Other)
  Sender: FDA-Public Use
  Company Number: US-009507513-1111USA02501

PATIENT
  Sex: Female
  Weight: 53.52 kg

DRUGS (4)
  1. FOSAMAX [Suspect]
     Indication: OSTEOPENIA
     Dosage: 70 MG, QW
     Route: 048
     Dates: start: 20051024, end: 20070109
  2. FOSAMAX [Suspect]
     Indication: OSTEOPOROSIS
  3. ACTONEL [Suspect]
     Indication: OSTEOPENIA
     Dosage: 35 MG, QW
     Dates: start: 20070109, end: 2010
  4. ACTONEL [Suspect]
     Indication: OSTEOPOROSIS

REACTIONS (28)
  - Inguinal hernia [Unknown]
  - Arthropathy [Unknown]
  - Osteonecrosis of jaw [Not Recovered/Not Resolved]
  - Oral infection [Unknown]
  - Impaired healing [Unknown]
  - Abscess [Unknown]
  - Oral disorder [Unknown]
  - Arthropathy [Unknown]
  - Scoliosis [Unknown]
  - Dental caries [Unknown]
  - Exostosis [Unknown]
  - Tooth disorder [Unknown]
  - Tooth disorder [Unknown]
  - Hypertension [Unknown]
  - Arthritis [Unknown]
  - Actinomyces test positive [Unknown]
  - Actinomycosis [Unknown]
  - Palpitations [Unknown]
  - Breast cyst [Unknown]
  - Breast disorder [Unknown]
  - Osteoarthritis [Unknown]
  - Breast disorder [Unknown]
  - Dental caries [Unknown]
  - Tooth fracture [Unknown]
  - Tooth disorder [Unknown]
  - Acute sinusitis [Unknown]
  - Tinea pedis [Unknown]
  - Osteomyelitis [Unknown]
